FAERS Safety Report 8101809-3 (Version None)
Quarter: 2012Q1

REPORT INFORMATION
  Report Type: 
  Country: None (occurrence: None)
  Receive Date: 20120131
  Receipt Date: 20120124
  Transmission Date: 20120608
  Serious: Yes (Hospitalization, Other)
  Sender: FDA-Public Use
  Company Number: PHHY2012IL004837

PATIENT
  Age: 81 Year
  Sex: Female
  Weight: 66 kg

DRUGS (10)
  1. ZOLEDRONOC ACID [Suspect]
     Dosage: 5 MG/100 ML
     Route: 042
     Dates: start: 20081116
  2. BEZAFIBRATE [Concomitant]
     Indication: DYSLIPIDAEMIA
     Dosage: 400 MG, UNK
     Route: 048
  3. ZOLEDRONOC ACID [Suspect]
     Indication: OSTEOPOROSIS
     Dosage: 5 MG/100 ML
     Route: 042
     Dates: start: 20070820
  4. ZOLEDRONOC ACID [Suspect]
     Dosage: 5 MG100 ML
     Route: 042
     Dates: start: 20111218
  5. ZOLEDRONOC ACID [Suspect]
     Dosage: 5 MG/100 ML
     Route: 042
     Dates: start: 20101101
  6. LEVOTHYROXINE SODIUM [Concomitant]
     Indication: HYPOTHYROIDISM
     Dosage: 50 UG, UNK
     Route: 048
  7. AMLODIPINE BESYLATE [Concomitant]
     Indication: HYPERTENSION
     Dosage: 2.5 MG, UNK
     Route: 048
  8. LANSOPRAZOLE [Concomitant]
     Indication: GASTROOESOPHAGEAL REFLUX DISEASE
     Dosage: 30 MG, UNK
     Route: 048
  9. ZOLEDRONOC ACID [Suspect]
     Dosage: 5 MG/100 ML
     Route: 042
     Dates: start: 20091101
  10. BUDESONIDE W/FORMOTEROL FUMARATE [Concomitant]
     Indication: ASTHMA
     Dosage: UNK UKN, UNK

REACTIONS (12)
  - PALPITATIONS [None]
  - HEART RATE INCREASED [None]
  - ELECTROCARDIOGRAM QRS COMPLEX PROLONGED [None]
  - BRONCHITIS [None]
  - ATRIOVENTRICULAR BLOCK [None]
  - ATRIAL TACHYCARDIA [None]
  - BUNDLE BRANCH BLOCK LEFT [None]
  - DYSPNOEA [None]
  - SUPRAVENTRICULAR TACHYCARDIA [None]
  - ARRHYTHMIA [None]
  - TACHYCARDIA [None]
  - ELECTROCARDIOGRAM PR SHORTENED [None]
